FAERS Safety Report 9994625 (Version 1)
Quarter: 2014Q1

REPORT INFORMATION
  Report Type: Spontaneous
  Country: US (occurrence: US)
  Receive Date: 20140311
  Receipt Date: 20140311
  Transmission Date: 20141002
  Serious: No
  Sender: FDA-Public Use
  Company Number: US-009507513-1402USA012145

PATIENT
  Sex: Male

DRUGS (2)
  1. ASMANEX TWISTHALER [Suspect]
     Dosage: 1 INHALATION TWICE DAILY
     Route: 055
     Dates: start: 20140219
  2. PROVENTIL [Concomitant]
     Dosage: PRN
     Route: 055

REACTIONS (4)
  - Skin papilloma [Recovered/Resolved]
  - Dysgeusia [Unknown]
  - Drug dose omission [Unknown]
  - Product quality issue [Unknown]
